FAERS Safety Report 9523843 (Version 1)
Quarter: 2013Q3

REPORT INFORMATION
  Report Type: Spontaneous
  Country: US (occurrence: None)
  Receive Date: 20130912
  Receipt Date: 20130912
  Transmission Date: 20140515
  Serious: Yes (Hospitalization, Other)
  Sender: FDA-Public Use
  Company Number: DAV-AE-FUR-13-07

PATIENT
  Age: 66 Year
  Sex: Female

DRUGS (7)
  1. FUROSEMIDE [Suspect]
     Indication: CARDIAC FAILURE
  2. DIGOXIN [Concomitant]
  3. SPIRONOLACTONE [Concomitant]
  4. CARVEDILOL [Concomitant]
  5. LISINOPRIL [Concomitant]
  6. METFORMIN [Concomitant]
  7. CALCIUM SUPPLEMENT [Concomitant]

REACTIONS (3)
  - Toxicity to various agents [None]
  - Hypomagnesaemia [None]
  - Atrial tachycardia [None]
